FAERS Safety Report 7588670-0 (Version None)
Quarter: 2011Q3

REPORT INFORMATION
  Report Type: 
  Country: None (occurrence: None)
  Receive Date: 20110705
  Receipt Date: 20110705
  Transmission Date: 20111222
  Serious: Yes (Hospitalization)
  Sender: FDA-Public Use
  Company Number: None

PATIENT
  Sex: Female
  Weight: 59.9 kg

DRUGS (1)
  1. VALPROIC ACID [Suspect]
     Indication: NEOPLASM
     Dosage: 250MG
     Route: 048
     Dates: start: 20110615, end: 20110621

REACTIONS (4)
  - DYSPNOEA [None]
  - PERFORMANCE STATUS DECREASED [None]
  - DISEASE PROGRESSION [None]
  - EJECTION FRACTION DECREASED [None]
